FAERS Safety Report 10663944 (Version 1)
Quarter: 2014Q4

REPORT INFORMATION
  Report Type: Spontaneous
  Country: US (occurrence: US)
  Receive Date: 20141219
  Receipt Date: 20141219
  Transmission Date: 20150529
  Serious: Yes (Other)
  Sender: FDA-Public Use
  Company Number: CHPA2014US016413

PATIENT
  Age: 38 Year
  Sex: Male

DRUGS (4)
  1. TRANSDERM SCOP [Suspect]
     Active Substance: SCOPOLAMINE
     Indication: PROCEDURAL NAUSEA
     Route: 065
  2. MECLIZINE [Suspect]
     Active Substance: MECLIZINE\MECLIZINE HYDROCHLORIDE
     Dosage: 50 MG, BID
     Route: 065
     Dates: start: 20140830, end: 20140830
  3. MECLIZINE [Suspect]
     Active Substance: MECLIZINE\MECLIZINE HYDROCHLORIDE
     Indication: PRODUCT USED FOR UNKNOWN INDICATION
     Dosage: 25 MG, AT NIGHT
     Route: 065
     Dates: start: 20140829
  4. MECLIZINE [Suspect]
     Active Substance: MECLIZINE\MECLIZINE HYDROCHLORIDE
     Dosage: 25 MG, BID
     Route: 065
     Dates: start: 20140831

REACTIONS (7)
  - Fatigue [Recovered/Resolved]
  - Drug dependence [Unknown]
  - Withdrawal syndrome [Recovered/Resolved]
  - Hangover [Recovered/Resolved]
  - Dizziness [Recovered/Resolved]
  - Somnolence [Recovered/Resolved]
  - Nausea [Recovered/Resolved]

NARRATIVE: CASE EVENT DATE: 20140829
